FAERS Safety Report 11152368 (Version 1)
Quarter: 2015Q2

REPORT INFORMATION
  Report Type: Spontaneous
  Country: None (occurrence: None)
  Receive Date: 20150529
  Receipt Date: 20150529
  Transmission Date: 20150821
  Serious: No
  Sender: FDA-Public Use
  Company Number: None

PATIENT
  Sex: Female

DRUGS (1)
  1. REQUIP [Suspect]
     Active Substance: ROPINIROLE HYDROCHLORIDE

REACTIONS (3)
  - Dyspnoea [None]
  - Rash generalised [None]
  - Swelling face [None]

NARRATIVE: CASE EVENT DATE: 2012
